FAERS Safety Report 7443892-4 (Version None)
Quarter: 2011Q2

REPORT INFORMATION
  Report Type: 
  Country: None (occurrence: None)
  Receive Date: 20110428
  Receipt Date: 20110107
  Transmission Date: 20111010
  Serious: Yes (Death, Other)
  Sender: FDA-Public Use
  Company Number: US-BAYER-200920296NA

PATIENT
  Age: 53 Year
  Sex: Male
  Weight: 94.8 kg

DRUGS (68)
  1. MAGNEVIST [Suspect]
     Indication: NUCLEAR MAGNETIC RESONANCE IMAGING
     Route: 042
     Dates: start: 20040921, end: 20040921
  2. PROHANCE [Suspect]
     Indication: NUCLEAR MAGNETIC RESONANCE IMAGING
  3. COREG [Concomitant]
  4. NEPHROCAPS [Concomitant]
  5. ALLOPURINOL [Concomitant]
  6. IRON [IRON] [Concomitant]
  7. OXYCODONE HCL [Concomitant]
  8. DURAGESIC [Concomitant]
  9. CIPROFLOXACIN [Concomitant]
  10. DOSS [ALFACALCIDOL] [Concomitant]
  11. MAGNEVIST [Suspect]
     Dates: start: 20040801, end: 20040801
  12. OMNISCAN [Suspect]
     Indication: NUCLEAR MAGNETIC RESONANCE IMAGING
  13. MULTIHANCE [Suspect]
     Indication: NUCLEAR MAGNETIC RESONANCE IMAGING
  14. RENAGEL [Concomitant]
  15. PREVACID [Concomitant]
  16. PRAZOSIN HCL [Concomitant]
  17. FOLIC ACID [Concomitant]
  18. EPOGEN [Concomitant]
  19. VANCOMYCIN [Concomitant]
  20. LOVENOX [Concomitant]
  21. PRILOSEC [Concomitant]
  22. NOVOLOG [Concomitant]
  23. DANOCRINE [Concomitant]
  24. TIAZAC [Concomitant]
  25. COMPAZINE [Concomitant]
  26. DIOVAN [Concomitant]
  27. GLYCINE 1.5% [Concomitant]
  28. MAXAIR MDI [Concomitant]
  29. KEPPRA [Concomitant]
  30. VICODIN [Concomitant]
  31. WELLBUTRIN [Concomitant]
  32. XYZAL [Concomitant]
  33. EPOETIN ALFA [Concomitant]
  34. HEPARIN [Concomitant]
     Route: 058
  35. ZOLOFT [Concomitant]
  36. INSULIN [INSULIN] [Concomitant]
  37. CEFTAZIDIME [Concomitant]
  38. SENOKOT [Concomitant]
  39. CALCIUM CARBONATE [Concomitant]
  40. LEXAPRO [Concomitant]
  41. AVELOX [Concomitant]
  42. CALCIUM [CALCIUM] [Concomitant]
  43. PANCRELIPASE [Concomitant]
  44. TOPROL-XL [Concomitant]
  45. MAGNEVIST [Suspect]
     Dosage: 15 ML, ONCE
     Dates: start: 20070901, end: 20070901
  46. MAGNEVIST [Suspect]
  47. COUMADIN [Concomitant]
  48. ALBUTEROL [Concomitant]
  49. PREDNISONE [Concomitant]
  50. RISPERDAL [Concomitant]
  51. EFFEXOR [Concomitant]
  52. TEQUIN [Concomitant]
  53. ACTIGALL [Concomitant]
  54. MAGNEVIST [Suspect]
     Indication: NUCLEAR MAGNETIC RESONANCE IMAGING BRAIN
     Route: 042
     Dates: start: 20030312, end: 20030312
  55. MAGNEVIST [Suspect]
     Route: 042
     Dates: start: 20070822, end: 20070822
  56. REQUIP [Concomitant]
  57. PANCREASE [Concomitant]
  58. SEVELAMER [Concomitant]
  59. VANCOMYCIN [Concomitant]
     Route: 042
  60. MAGNEVIST [Suspect]
     Route: 042
     Dates: start: 20060207, end: 20060207
  61. OPTIMARK [Suspect]
     Indication: NUCLEAR MAGNETIC RESONANCE IMAGING
  62. DANAZOL [Concomitant]
  63. AMARYL [Concomitant]
  64. ASPIRIN [Concomitant]
  65. CLARITIN [Concomitant]
  66. REMERON [Concomitant]
  67. REQUIP [Concomitant]
  68. DILAUDID [Concomitant]

REACTIONS (27)
  - SKIN TIGHTNESS [None]
  - SKIN EXFOLIATION [None]
  - OEDEMA PERIPHERAL [None]
  - PAIN OF SKIN [None]
  - HYPERKERATOSIS [None]
  - ERYTHEMA [None]
  - OEDEMA [None]
  - SKIN HYPERPIGMENTATION [None]
  - SKIN HYPERTROPHY [None]
  - SKIN INDURATION [None]
  - ARTHRALGIA [None]
  - JOINT CONTRACTURE [None]
  - GAIT DISTURBANCE [None]
  - GENERAL PHYSICAL HEALTH DETERIORATION [None]
  - MOBILITY DECREASED [None]
  - PAIN IN EXTREMITY [None]
  - JOINT RANGE OF MOTION DECREASED [None]
  - FIBROSIS [None]
  - SCAR [None]
  - MUSCULOSKELETAL STIFFNESS [None]
  - PARAESTHESIA [None]
  - SKIN DISORDER [None]
  - NEPHROGENIC SYSTEMIC FIBROSIS [None]
  - PAIN [None]
  - DEFORMITY [None]
  - SKIN OEDEMA [None]
  - HYPOAESTHESIA [None]
